FAERS Safety Report 19238538 (Version 1)
Quarter: 2021Q2

REPORT INFORMATION
  Report Type: Spontaneous
  Country: BR (occurrence: BR)
  Receive Date: 20210510
  Receipt Date: 20210510
  Transmission Date: 20210717
  Serious: Yes (Other)
  Sender: FDA-Public Use
  Company Number: BR-ORGANON-2102BRA000487

PATIENT
  Sex: Female

DRUGS (2)
  1. CERAZETTE (DESOGESTREL) [Suspect]
     Active Substance: DESOGESTREL
     Dosage: UNK
     Route: 063
  2. LOSARTAN POTASSIUM. [Suspect]
     Active Substance: LOSARTAN POTASSIUM
     Dosage: UNK
     Route: 064

REACTIONS (8)
  - Dust allergy [Recovering/Resolving]
  - Haematochezia [Recovering/Resolving]
  - Foetal distress syndrome [Recovering/Resolving]
  - Milk allergy [Recovering/Resolving]
  - Mucous stools [Recovering/Resolving]
  - Exposure via breast milk [Unknown]
  - Drug hypersensitivity [Recovering/Resolving]
  - Foetal exposure during pregnancy [Unknown]
